FAERS Safety Report 22030164 (Version 1)
Quarter: 2023Q1

REPORT INFORMATION
  Report Type: Report from Study
  Country: NL (occurrence: NL)
  Receive Date: 20230223
  Receipt Date: 20230223
  Transmission Date: 20230417
  Serious: Yes (Hospitalization)
  Sender: FDA-Public Use
  Company Number: NL-VER-202300010

PATIENT
  Sex: Male

DRUGS (12)
  1. TRIPTORELIN PAMOATE [Suspect]
     Active Substance: TRIPTORELIN PAMOATE
     Indication: Prostate cancer
     Dosage: 1.00X PER 24 WEEKS (22.5 MG)
     Route: 030
  2. OMEPRAZOLE [Concomitant]
     Active Substance: OMEPRAZOLE
     Indication: Product used for unknown indication
     Dosage: 1XDD1 X 40 MG
     Route: 065
  3. LOSARTAN [Concomitant]
     Active Substance: LOSARTAN
     Indication: Product used for unknown indication
     Dosage: 1XDD1 X 100 MG
     Route: 065
  4. ROSUVASTATIN [Concomitant]
     Active Substance: ROSUVASTATIN
     Indication: Product used for unknown indication
     Dosage: 1XDD1 X 10 MG
     Route: 065
  5. PREDNISOLONE [Concomitant]
     Active Substance: PREDNISOLONE
     Indication: Product used for unknown indication
     Dosage: 1XDD2 X 5 MG
     Route: 065
  6. TACAL D3 [Concomitant]
     Indication: Product used for unknown indication
     Dosage: 1XDD1 X 500MG/800 IE
     Route: 065
  7. ZYTIGA [Concomitant]
     Active Substance: ABIRATERONE ACETATE
     Indication: Product used for unknown indication
     Dosage: 1XDD2 X 500 MG
     Route: 065
  8. TRIAMTERENE [Concomitant]
     Active Substance: TRIAMTERENE
     Indication: Product used for unknown indication
     Dosage: 1XDD2 X 50MG/25MG
     Route: 065
  9. SOLIFENACIN [Concomitant]
     Active Substance: SOLIFENACIN
     Indication: Product used for unknown indication
     Dosage: 1XDD1 X 5 MG
     Route: 065
  10. CYPROTERONACETAAT [Concomitant]
     Indication: Product used for unknown indication
     Dosage: 1XDD1 X 50 MG
     Route: 065
  11. ASPIRIN [Concomitant]
     Active Substance: ASPIRIN
     Indication: Product used for unknown indication
     Dosage: 1XDD1 X 80 MG
     Route: 065
  12. TAMSULOSIN [Concomitant]
     Active Substance: TAMSULOSIN
     Indication: Product used for unknown indication
     Dosage: 1XDD1 X 0,4 MG
     Route: 065

REACTIONS (1)
  - Aneurysm [Recovering/Resolving]
